FAERS Safety Report 15742366 (Version 1)
Quarter: 2018Q4

REPORT INFORMATION
  Report Type: Spontaneous
  Country: JP (occurrence: JP)
  Receive Date: 20181219
  Receipt Date: 20181219
  Transmission Date: 20190205
  Serious: Yes (Hospitalization)
  Sender: FDA-Public Use
  Company Number: PHJP2018JP020775

PATIENT

DRUGS (1)
  1. AMANTADINE. [Suspect]
     Active Substance: AMANTADINE HYDROCHLORIDE
     Indication: CEREBRAL INFARCTION
     Dosage: 100 MG, UNK
     Route: 048

REACTIONS (9)
  - Myoclonus [Unknown]
  - Tremor [Unknown]
  - Product use in unapproved indication [Unknown]
  - Blood creatine phosphokinase increased [Unknown]
  - Altered state of consciousness [Unknown]
  - Pyrexia [Unknown]
  - Arrhythmia [Unknown]
  - Toxicity to various agents [Unknown]
  - Cardiac failure [Unknown]
